FAERS Safety Report 4474419-7 (Version None)
Quarter: 2004Q4

REPORT INFORMATION
  Report Type: 
  Country: None (occurrence: None)
  Receive Date: 20041014
  Receipt Date: 20041007
  Transmission Date: 20050328
  Serious: Yes (Life-Threatening, Hospitalization, Disabling)
  Sender: FDA-Public Use
  Company Number: US-MERCK-0410USA01198

PATIENT
  Age: 56 Year
  Sex: Female

DRUGS (6)
  1. TEGRETOL [Concomitant]
     Route: 065
  2. LASIX [Concomitant]
     Route: 065
  3. NEURONTIN [Concomitant]
     Route: 065
  4. INSULIN [Concomitant]
     Route: 065
  5. ISOSORBIDE [Concomitant]
     Route: 065
  6. VIOXX [Suspect]
     Indication: ARTHRITIS
     Route: 048
     Dates: start: 20010101, end: 20040930

REACTIONS (3)
  - CARDIAC FAILURE CONGESTIVE [None]
  - CARDIAC MURMUR [None]
  - CHEST PAIN [None]
